FAERS Safety Report 14185380 (Version 1)
Quarter: 2017Q4

REPORT INFORMATION
  Report Type: Spontaneous
  Country: US (occurrence: US)
  Receive Date: 20171114
  Receipt Date: 20171114
  Transmission Date: 20180321
  Serious: No
  Sender: FDA-Public Use
  Company Number: US-TARO-2017TAR00370

PATIENT
  Age: 59 Year
  Sex: Female
  Weight: 126.98 kg

DRUGS (17)
  1. ESCITALOPRAM [Concomitant]
     Active Substance: ESCITALOPRAM OXALATE
  2. LYRICA [Concomitant]
     Active Substance: PREGABALIN
  3. ASPIRIN. [Concomitant]
     Active Substance: ASPIRIN
  4. REQUIP [Concomitant]
     Active Substance: ROPINIROLE HYDROCHLORIDE
  5. METFORMIN [Concomitant]
     Active Substance: METFORMIN HYDROCHLORIDE
  6. MUPIROCIN OINTMENT USP 2% [Suspect]
     Active Substance: MUPIROCIN
     Indication: DERMAL CYST
     Dosage: UNK, 3X/DAY
     Route: 061
     Dates: start: 20170509
  7. NYSTATIN (ACTAVIS) [Suspect]
     Active Substance: NYSTATIN
     Dosage: UNK, 2X/DAY
     Route: 061
     Dates: start: 20170509
  8. CETIRIZINE [Concomitant]
     Active Substance: CETIRIZINE HYDROCHLORIDE
  9. METHOCARBAMOL. [Concomitant]
     Active Substance: METHOCARBAMOL
  10. LIVALO [Concomitant]
     Active Substance: PITAVASTATIN CALCIUM
  11. PREVACID [Concomitant]
     Active Substance: LANSOPRAZOLE
  12. AMLODIPINE BESYLATE. [Concomitant]
     Active Substance: AMLODIPINE BESYLATE
  13. OXYCODONE ACETAMINOPHEN [Concomitant]
     Active Substance: ACETAMINOPHEN\OXYCODONE HYDROCHLORIDE
  14. LOSARTAN POTASSIUM. [Concomitant]
     Active Substance: LOSARTAN POTASSIUM
  15. SPIRONOLACTONE. [Concomitant]
     Active Substance: SPIRONOLACTONE
  16. PRISTIQ EXTENDED-RELEASE [Concomitant]
     Active Substance: DESVENLAFAXINE SUCCINATE
  17. MORPHINE SULFATE. [Concomitant]
     Active Substance: MORPHINE SULFATE

REACTIONS (5)
  - Drug administration error [None]
  - Application site pain [None]
  - Off label use [Not Recovered/Not Resolved]
  - Application site pain [Not Recovered/Not Resolved]
  - Condition aggravated [None]

NARRATIVE: CASE EVENT DATE: 20170509
